FAERS Safety Report 6117699-4 (Version None)
Quarter: 2009Q1

REPORT INFORMATION
  Report Type: 
  Country: None (occurrence: None)
  Receive Date: 20090314
  Receipt Date: 20090126
  Transmission Date: 20090719
  Serious: No
  Sender: FDA-Public Use
  Company Number: US-ABBOTT-09P-163-0500230-00

PATIENT
  Sex: Male
  Weight: 88.53 kg

DRUGS (16)
  1. HUMIRA [Suspect]
     Indication: PSORIASIS
     Route: 058
     Dates: start: 20080428
  2. PLAVIX [Concomitant]
     Indication: CORONARY ARTERIAL STENT INSERTION
  3. ZOCOR [Concomitant]
     Indication: BLOOD CHOLESTEROL INCREASED
  4. RAMIPRIL [Concomitant]
     Indication: DIABETES MELLITUS
  5. RAMIPRIL [Concomitant]
     Indication: HYPERTENSION
  6. METOPROLOL TARTRATE [Concomitant]
     Indication: HYPERTENSION
  7. ASPIRIN [Concomitant]
     Indication: CARDIAC DISORDER
  8. PROSCAR [Concomitant]
     Indication: BENIGN PROSTATIC HYPERPLASIA
  9. UROXATRAL [Concomitant]
     Indication: BENIGN PROSTATIC HYPERPLASIA
  10. NIACIN [Concomitant]
     Indication: CARDIAC DISORDER
  11. NIACIN [Concomitant]
     Indication: BLOOD CHOLESTEROL INCREASED
  12. IMDUR [Concomitant]
     Indication: CARDIAC DISORDER
  13. ADVAIR HFA [Concomitant]
     Indication: ASTHMA
     Dosage: 250/50 MG -  1 PUFF X 2 DAILY
  14. GLIPIZIDE [Concomitant]
     Indication: TYPE 2 DIABETES MELLITUS
  15. GLUCOPHAGE [Concomitant]
     Indication: TYPE 2 DIABETES MELLITUS
  16. NEXIUM [Concomitant]
     Indication: GASTROOESOPHAGEAL REFLUX DISEASE

REACTIONS (2)
  - NODULE [None]
  - PRURITUS [None]
